FAERS Safety Report 6554361-8 (Version None)
Quarter: 2010Q1

REPORT INFORMATION
  Report Type: 
  Country: None (occurrence: None)
  Receive Date: 20100127
  Receipt Date: 20100122
  Transmission Date: 20100710
  Serious: Yes (Hospitalization)
  Sender: FDA-Public Use
  Company Number: B0610537A

PATIENT
  Sex: Male

DRUGS (6)
  1. RELENZA [Suspect]
     Indication: INFLUENZA
     Dosage: 10MG TWICE PER DAY
     Route: 055
     Dates: start: 20091128, end: 20091130
  2. CALONAL [Concomitant]
     Indication: ANTIPYRESIS
     Route: 048
  3. SOLDEM 3A [Concomitant]
     Indication: EATING DISORDER
     Dates: start: 20091128, end: 20091128
  4. CLARITH [Concomitant]
     Dosage: 400MG PER DAY
     Route: 048
  5. METHISTA [Concomitant]
     Dosage: 750MG PER DAY
     Route: 048
  6. COLDRIN [Concomitant]
     Dosage: 37.5MG PER DAY
     Route: 048

REACTIONS (4)
  - HAEMORRHAGIC DIATHESIS [None]
  - PETECHIAE [None]
  - PLATELET COUNT DECREASED [None]
  - PURPURA [None]
